FAERS Safety Report 16341595 (Version 7)
Quarter: 2019Q4

REPORT INFORMATION
  Report Type: Spontaneous
  Country: JP (occurrence: JP)
  Receive Date: 20190522
  Receipt Date: 20191015
  Transmission Date: 20200122
  Serious: Yes (Death, Other)
  Sender: FDA-Public Use
  Company Number: JP-BRISTOL-MYERS SQUIBB COMPANY-BMS-2019-048009

PATIENT
  Age: 76 Year
  Sex: Female
  Weight: 39.7 kg

DRUGS (2)
  1. OPDIVO [Suspect]
     Active Substance: NIVOLUMAB
     Indication: MALIGNANT MELANOMA
     Dosage: 80 MILLIGRAM
     Route: 041
     Dates: start: 20190417, end: 20190514
  2. YERVOY [Suspect]
     Active Substance: IPILIMUMAB
     Indication: MALIGNANT MELANOMA
     Dosage: 111 MILLIGRAM
     Route: 041
     Dates: start: 20190417, end: 20190417

REACTIONS (1)
  - Stress cardiomyopathy [Fatal]

NARRATIVE: CASE EVENT DATE: 20190514
